FAERS Safety Report 11154893 (Version 3)
Quarter: 2015Q3

REPORT INFORMATION
  Report Type: Spontaneous
  Country: JP (occurrence: None)
  Receive Date: 20150529
  Receipt Date: 20150724
  Transmission Date: 20151125
  Serious: Yes (Death, Hospitalization, Other)
  Sender: FDA-Public Use
  Company Number: ADR-2015-01039

PATIENT
  Age: 54 Year
  Sex: Male

DRUGS (1)
  1. GABALON INTRATHECAL [Suspect]
     Active Substance: BACLOFEN
     Dosage: 6/20/2015 TO DEATH
     Dates: start: 20130620

REACTIONS (5)
  - Dysphagia [None]
  - Joint contracture [None]
  - Altered state of consciousness [None]
  - Pneumonia aspiration [None]
  - Pneumonia [None]
